FAERS Safety Report 20770356 (Version 1)
Quarter: 2022Q2

REPORT INFORMATION
  Report Type: Spontaneous
  Country: US (occurrence: US)
  Receive Date: 20220429
  Receipt Date: 20220429
  Transmission Date: 20220721
  Serious: Yes (Hospitalization)
  Sender: FDA-Public Use
  Company Number: US-NOVARTISPH-NVSC2022US094074

PATIENT
  Sex: Male

DRUGS (2)
  1. EVEROLIMUS [Suspect]
     Active Substance: EVEROLIMUS
     Indication: Product used for unknown indication
     Dosage: 5 MG, QD, BY MOUTH
     Route: 065
     Dates: start: 20211227, end: 20220406
  2. LENVIMA [Suspect]
     Active Substance: LENVATINIB
     Indication: Renal cancer
     Dosage: 10 MG, QD, BY MOUTH
     Route: 065
     Dates: start: 20211227, end: 20220406

REACTIONS (8)
  - Vomiting [Recovering/Resolving]
  - Diarrhoea [Recovering/Resolving]
  - Hiccups [Recovering/Resolving]
  - Dehydration [Recovering/Resolving]
  - Blood sodium decreased [Recovering/Resolving]
  - Blood creatinine abnormal [Recovering/Resolving]
  - Bone neoplasm [Unknown]
  - Off label use [Recovering/Resolving]
